FAERS Safety Report 20141296 (Version 1)
Quarter: 2021Q4

REPORT INFORMATION
  Report Type: Spontaneous
  Country: US (occurrence: US)
  Receive Date: 20211202
  Receipt Date: 20211202
  Transmission Date: 20220303
  Serious: Yes (Other)
  Sender: FDA-Public Use
  Company Number: US-MLMSERVICE-20211117-3221975-2

PATIENT
  Age: 13 Year
  Sex: Female

DRUGS (4)
  1. CYTARABINE [Suspect]
     Active Substance: CYTARABINE
     Indication: Acute myeloid leukaemia
     Dosage: UNK, COMPLETED FIVE CYCLES OF CHEMOTHERAPY
  2. ETOPOSIDE [Suspect]
     Active Substance: ETOPOSIDE
     Indication: Acute myeloid leukaemia
     Dosage: UNK, COMPLETED FIVE CYCLES OF CHEMOTHERAPY
  3. DAUNORUBICIN [Suspect]
     Active Substance: DAUNORUBICIN
     Indication: Acute myeloid leukaemia
     Dosage: UNK, COMPLETED FIVE CYCLES OF CHEMOTHERAPY
  4. HYDROXYUREA [Concomitant]
     Active Substance: HYDROXYUREA
     Dosage: REDUCED DOSE

REACTIONS (9)
  - Brain herniation [Unknown]
  - Acute hepatic failure [Unknown]
  - Colitis [Unknown]
  - Hepatic lesion [Unknown]
  - Hepatic vein thrombosis [Unknown]
  - Portal vein thrombosis [Unknown]
  - Cardiac arrest [Unknown]
  - Mucormycosis [Unknown]
  - Cerebrovascular accident [Unknown]
